FAERS Safety Report 5034630-3 (Version None)
Quarter: 2006Q2

REPORT INFORMATION
  Report Type: 
  Country: None (occurrence: None)
  Receive Date: 20060626
  Receipt Date: 20060331
  Transmission Date: 20061013
  Serious: Yes (Death, Hospitalization, Other)
  Sender: FDA-Public Use
  Company Number: US-MERCK-0604USA00008

PATIENT
  Age: 83 Year
  Sex: Female

DRUGS (2)
  1. VYTORIN [Suspect]
     Route: 048
     Dates: end: 20060501
  2. [THERAPY UNSPECIFIED] [Concomitant]
     Route: 065

REACTIONS (7)
  - CARDIAC FAILURE [None]
  - DEATH [None]
  - DIASTOLIC DYSFUNCTION [None]
  - EATING DISORDER [None]
  - FALL [None]
  - RENAL FAILURE [None]
  - RHABDOMYOLYSIS [None]
